FAERS Safety Report 22301135 (Version 2)
Quarter: 2023Q2

REPORT INFORMATION
  Report Type: Report from Study
  Country: US (occurrence: US)
  Receive Date: 20230509
  Receipt Date: 20230510
  Transmission Date: 20230722
  Serious: No
  Sender: FDA-Public Use
  Company Number: US-SA-SAC20230504000826

PATIENT
  Age: 2 Year
  Sex: Male
  Weight: 13 kg

DRUGS (2)
  1. DUPIXENT [Suspect]
     Active Substance: DUPILUMAB
     Indication: Dermatitis atopic
     Dosage: 200 MG, Q4W
     Route: 058
     Dates: start: 20230410
  2. DUPIXENT [Suspect]
     Active Substance: DUPILUMAB
     Indication: Eczema

REACTIONS (2)
  - Incorrect dose administered [Unknown]
  - Product preparation error [Unknown]
